FAERS Safety Report 18863248 (Version 1)
Quarter: 2021Q1

REPORT INFORMATION
  Report Type: Report from Study
  Country: US (occurrence: US)
  Receive Date: 20210208
  Receipt Date: 20210208
  Transmission Date: 20210420
  Serious: No
  Sender: FDA-Public Use
  Company Number: NVSC2021US023186

PATIENT
  Sex: Male

DRUGS (1)
  1. ENTRESTO [Suspect]
     Active Substance: SACUBITRIL\VALSARTAN
     Indication: PRODUCT USED FOR UNKNOWN INDICATION
     Dosage: 100 MG, BID, 49.51 MG
     Route: 048

REACTIONS (4)
  - Sensitivity to weather change [Unknown]
  - Product dose omission issue [Unknown]
  - Hypersensitivity [Unknown]
  - Rhinorrhoea [Unknown]
